FAERS Safety Report 11727757 (Version 1)
Quarter: 2015Q4

REPORT INFORMATION
  Report Type: Spontaneous
  Country: MK (occurrence: MK)
  Receive Date: 20151112
  Receipt Date: 20151112
  Transmission Date: 20160304
  Serious: Yes (Other)
  Sender: FDA-Public Use
  Company Number: MK-BAYER-2014-065219

PATIENT
  Age: 15 Year
  Sex: Female

DRUGS (2)
  1. YAZ [Suspect]
     Active Substance: DROSPIRENONE\ETHINYL ESTRADIOL
     Indication: MENORRHAGIA
     Dosage: UNK
     Route: 048
     Dates: start: 2012, end: 20140202
  2. TRANEXAMIC ACID. [Concomitant]
     Active Substance: TRANEXAMIC ACID
     Dosage: UNK
     Dates: start: 2012

REACTIONS (6)
  - Product use issue [None]
  - Headache [Recovered/Resolved]
  - Thrombocytopenia [Unknown]
  - Tremor [Recovered/Resolved]
  - Hypercoagulation [Unknown]
  - Gingivitis ulcerative [Unknown]

NARRATIVE: CASE EVENT DATE: 201404
